FAERS Safety Report 7789873-2 (Version None)
Quarter: 2011Q3

REPORT INFORMATION
  Report Type: 
  Country: None (occurrence: None)
  Receive Date: 20110930
  Receipt Date: 20100819
  Transmission Date: 20111222
  Serious: No
  Sender: FDA-Public Use
  Company Number: US-ASTRAZENECA-2008UW04464

PATIENT
  Age: 60 Year
  Sex: Female
  Weight: 104.3 kg

DRUGS (15)
  1. LIPITOR [Concomitant]
     Indication: HYPERCHOLESTEROLAEMIA
  2. LUNESTA [Concomitant]
     Indication: INSOMNIA
  3. DIAZEPAM [Concomitant]
     Indication: INSOMNIA
  4. LOVAZA [Concomitant]
  5. ESTER-C [Concomitant]
     Indication: MEDICAL DIET
  6. PRILOSEC [Concomitant]
     Indication: GASTROOESOPHAGEAL REFLUX DISEASE
  7. HYDROCHLOROTHIAZIDE [Concomitant]
  8. VITAMIN D [Concomitant]
     Indication: VITAMIN SUPPLEMENTATION
  9. ARIMIDEX [Suspect]
     Route: 048
     Dates: start: 20090101
  10. RECEPTIN [Concomitant]
  11. VENLAFAXINE HYDROCHLORIDE [Concomitant]
  12. ARIMIDEX [Suspect]
     Indication: BREAST CANCER
     Route: 048
     Dates: start: 20080201
  13. CELEBREX [Concomitant]
     Indication: ARTHRITIS
  14. GARLIC [Concomitant]
     Indication: PHYTOTHERAPY
  15. CITRICAL [Concomitant]
     Indication: MEDICAL DIET

REACTIONS (3)
  - LETHARGY [None]
  - HYPERHIDROSIS [None]
  - SWELLING [None]
